FAERS Safety Report 15148373 (Version 1)
Quarter: 2018Q3

REPORT INFORMATION
  Report Type: Spontaneous
  Country: JP (occurrence: JP)
  Receive Date: 20180716
  Receipt Date: 20180716
  Transmission Date: 20181010
  Serious: Yes (Other)
  Sender: FDA-Public Use
  Company Number: JP-PFIZER INC-2018280976

PATIENT
  Age: 69 Year
  Sex: Female

DRUGS (2)
  1. CYTARABINE. [Suspect]
     Active Substance: CYTARABINE
     Indication: ERYTHROLEUKAEMIA
     Dosage: UNK
  2. IDARUBICIN HCL [Suspect]
     Active Substance: IDARUBICIN HYDROCHLORIDE
     Indication: ERYTHROLEUKAEMIA
     Dosage: UNK

REACTIONS (3)
  - Intestinal ulcer [Unknown]
  - Cardiac failure acute [Unknown]
  - Polymyositis [Unknown]
